FAERS Safety Report 11358575 (Version 1)
Quarter: 2015Q3

REPORT INFORMATION
  Report Type: Spontaneous
  Country: US (occurrence: US)
  Receive Date: 20150803
  Receipt Date: 20150803
  Transmission Date: 20151125
  Serious: No
  Sender: FDA-Public Use
  Company Number: US-ELI_LILLY_AND_COMPANY-US200907004183

PATIENT
  Sex: Male

DRUGS (2)
  1. ZYPREXA [Suspect]
     Active Substance: OLANZAPINE
     Indication: OBSESSIVE THOUGHTS
     Dosage: 10 MG, EACH EVENING
     Dates: start: 20090617
  2. ZYPREXA [Suspect]
     Active Substance: OLANZAPINE
     Dosage: 2.5 MG, EACH MORNING

REACTIONS (4)
  - Anxiety [Unknown]
  - Muscle twitching [Unknown]
  - Off label use [Unknown]
  - Muscle spasms [Unknown]
